FAERS Safety Report 4479501-6 (Version None)
Quarter: 2004Q4

REPORT INFORMATION
  Report Type: 
  Country: None (occurrence: None)
  Receive Date: 20041018
  Receipt Date: 20041006
  Transmission Date: 20050328
  Serious: Yes (Disabling)
  Sender: FDA-Public Use
  Company Number: JP-2004-031780

PATIENT
  Age: 80 Year
  Sex: Male
  Weight: 43 kg

DRUGS (7)
  1. FLUDARA [Suspect]
     Indication: CHRONIC LYMPHOCYTIC LEUKAEMIA
     Dosage: 17 MG, 1X/DAY, IV DRIP
     Route: 041
     Dates: start: 20040906, end: 20040910
  2. ISONIAZID [Suspect]
     Indication: TUBERCULOSIS PROPHYLAXIS
     Dosage: 400 MG, 1X/DAY, ORAL
     Route: 048
     Dates: start: 20040820
  3. METHYCOBAL (MECOBALAMIN) TABLET [Concomitant]
  4. PREDONINE TABLET [Concomitant]
  5. BACTAR TABLETS TABLET [Concomitant]
  6. ULCERMIN (SUCRALFATE) POWDER [Concomitant]
  7. ZYLORIC [Concomitant]

REACTIONS (3)
  - BENIGN PROSTATIC HYPERPLASIA [None]
  - NEUROGENIC BLADDER [None]
  - URINARY RETENTION [None]
